FAERS Safety Report 12266582 (Version 1)
Quarter: 2016Q2

REPORT INFORMATION
  Report Type: Spontaneous
  Country: US (occurrence: US)
  Receive Date: 20160414
  Receipt Date: 20160414
  Transmission Date: 20160815
  Serious: Yes (Hospitalization)
  Sender: FDA-Public Use
  Company Number: US-BEH-2016061076

PATIENT
  Sex: Female
  Weight: 57 kg

DRUGS (24)
  1. ZEMAIRA [Suspect]
     Active Substance: .ALPHA.1-PROTEINASE INHIBITOR HUMAN
     Indication: ALPHA-1 ANTI-TRYPSIN DEFICIENCY
     Route: 042
  2. FENOFIBRATE. [Concomitant]
     Active Substance: FENOFIBRATE
  3. SPIRIVA [Concomitant]
     Active Substance: TIOTROPIUM BROMIDE MONOHYDRATE
  4. ASPIRIN. [Concomitant]
     Active Substance: ASPIRIN
  5. ACETAMINOPHEN\HYDROCODONE BITARTRATE [Concomitant]
     Active Substance: ACETAMINOPHEN\HYDROCODONE BITARTRATE
  6. EPIPEN [Concomitant]
     Active Substance: EPINEPHRINE
  7. SOLU-MEDROL [Concomitant]
     Active Substance: METHYLPREDNISOLONE SODIUM SUCCINATE
  8. ZOFRAN [Concomitant]
     Active Substance: ONDANSETRON HYDROCHLORIDE
  9. LOSARTAN. [Concomitant]
     Active Substance: LOSARTAN
  10. VITAMIN D [Concomitant]
     Active Substance: CHOLECALCIFEROL
  11. ATENOLOL. [Concomitant]
     Active Substance: ATENOLOL
  12. CLONAZEPAM. [Concomitant]
     Active Substance: CLONAZEPAM
  13. HEPARIN [Concomitant]
     Active Substance: HEPARIN SODIUM
  14. BUPROPION. [Concomitant]
     Active Substance: BUPROPION
  15. CITRACAL [Concomitant]
     Active Substance: CALCIUM CITRATE
  16. RANITIDINE. [Concomitant]
     Active Substance: RANITIDINE
  17. VENTOLIN [Concomitant]
     Active Substance: ALBUTEROL SULFATE
  18. SINGULAIR [Concomitant]
     Active Substance: MONTELUKAST SODIUM
  19. IBUPROFEN. [Concomitant]
     Active Substance: IBUPROFEN
  20. DIPHENHYDRAMINE. [Concomitant]
     Active Substance: DIPHENHYDRAMINE
  21. SODIUM CHLORIDE. [Concomitant]
     Active Substance: SODIUM CHLORIDE
  22. GABAPENTIN. [Concomitant]
     Active Substance: GABAPENTIN
  23. FLONASE [Concomitant]
     Active Substance: FLUTICASONE PROPIONATE
  24. ACIPHEX [Concomitant]
     Active Substance: RABEPRAZOLE SODIUM

REACTIONS (1)
  - Gallbladder operation [Unknown]
